FAERS Safety Report 9333467 (Version 2)
Quarter: 2013Q2

REPORT INFORMATION
  Report Type: Spontaneous
  Country: US (occurrence: None)
  Receive Date: 20130604
  Receipt Date: 20130619
  Transmission Date: 20140414
  Serious: Yes (Other)
  Sender: FDA-Public Use
  Company Number: US-ZYDUS-001248

PATIENT
  Age: 36 Year
  Sex: Male

DRUGS (2)
  1. AZATHIOPRINE [Suspect]
  2. INFLIXIMAB (INFLIXIMAB) [Suspect]

REACTIONS (5)
  - Lymphoma [None]
  - Diffuse large B-cell lymphoma [None]
  - Large intestinal stenosis [None]
  - Epstein-Barr virus test positive [None]
  - Large intestinal ulcer [None]
